FAERS Safety Report 15878285 (Version 3)
Quarter: 2019Q2

REPORT INFORMATION
  Report Type: Spontaneous
  Country: US (occurrence: US)
  Receive Date: 20190128
  Receipt Date: 20190416
  Transmission Date: 20190711
  Serious: Yes (Other)
  Sender: FDA-Public Use
  Company Number: US-PFIZER INC-2019033101

PATIENT
  Age: 71 Year
  Sex: Male
  Weight: 89.81 kg

DRUGS (12)
  1. DILAUDID [Concomitant]
     Active Substance: HYDROMORPHONE HYDROCHLORIDE
     Dosage: UNK
     Dates: start: 20180217, end: 20180223
  2. NEURONTIN [Suspect]
     Active Substance: GABAPENTIN
     Indication: NEURALGIA
  3. MYCOPHENOLATE [Suspect]
     Active Substance: MYCOPHENOLIC ACID
     Dosage: 2 DF, 2X/DAY [2 DF 2X/DAY]
     Dates: start: 20180104, end: 20180126
  4. HYDROCODEINE [Suspect]
     Active Substance: DIHYDROCODEINE PHOSPHATE
     Indication: PAIN
     Dosage: 2DF, AS NEEDED  [5-325 MG 2-EVERY 6 HOURS]
     Dates: start: 20180223, end: 20180916
  5. NAPROXEN. [Concomitant]
     Active Substance: NAPROXEN
     Dosage: UNK
     Dates: start: 20180217, end: 20180917
  6. PAROXETINE. [Suspect]
     Active Substance: PAROXETINE
     Indication: PAIN
     Dosage: 20 MG, 1X/DAY
     Dates: start: 20180111, end: 20180217
  7. MYCOPHENOLATE [Suspect]
     Active Substance: MYCOPHENOLIC ACID
     Indication: PAIN
     Dosage: 1 DF, 2X/DAY [1 DF 2X/DAY AFTER 14 DAYS]
     Dates: start: 20180104, end: 20180126
  8. CYMBALTA [Suspect]
     Active Substance: DULOXETINE HYDROCHLORIDE
     Indication: PAIN
     Dosage: 60 MG, 1X/DAY
     Dates: start: 20180217, end: 20180924
  9. NORCO [Concomitant]
     Active Substance: ACETAMINOPHEN\HYDROCODONE BITARTRATE
     Dosage: UNK
     Dates: start: 20180223, end: 20180311
  10. TRAMADOL. [Concomitant]
     Active Substance: TRAMADOL
     Dosage: UNK
     Dates: start: 20171213, end: 20180103
  11. NEURONTIN [Suspect]
     Active Substance: GABAPENTIN
     Indication: PAIN
     Dosage: 800 MG, 3X/DAY
     Dates: start: 20171213, end: 20180923
  12. PAXIL [PIROXICAM] [Concomitant]
     Active Substance: PIROXICAM
     Dosage: UNK
     Dates: start: 20171227, end: 20180318

REACTIONS (5)
  - Pain in extremity [Not Recovered/Not Resolved]
  - Gait inability [Not Recovered/Not Resolved]
  - Diabetes mellitus [Not Recovered/Not Resolved]
  - Diabetic amyotrophy [Not Recovered/Not Resolved]
  - Drug ineffective [Not Recovered/Not Resolved]

NARRATIVE: CASE EVENT DATE: 201803
